FAERS Safety Report 6139854-X (Version None)
Quarter: 2009Q1

REPORT INFORMATION
  Report Type: 
  Country: None (occurrence: None)
  Receive Date: 20090331
  Receipt Date: 20090331
  Transmission Date: 20090719
  Serious: Yes (Hospitalization)
  Sender: FDA-Public Use
  Company Number: None

PATIENT
  Age: 57 Year
  Sex: Male

DRUGS (1)
  1. VORICONAZOLE [Suspect]
     Indication: COCCIDIOIDOMYCOSIS
     Dosage: 400 MG BID PO
     Route: 048
     Dates: start: 20081018, end: 20081107

REACTIONS (2)
  - HEPATIC ENZYME INCREASED [None]
  - TREATMENT FAILURE [None]
